FAERS Safety Report 10408468 (Version 3)
Quarter: 2015Q1

REPORT INFORMATION
  Report Type: Spontaneous
  Country: GB (occurrence: GB)
  Receive Date: 20140826
  Receipt Date: 20150331
  Transmission Date: 20150720
  Serious: Yes (Hospitalization, Other)
  Sender: FDA-Public Use
  Company Number: GB-PERRIGO-14GB008186

PATIENT
  Age: 29 Year
  Sex: Female

DRUGS (8)
  1. COCODAMOL [Suspect]
     Active Substance: ACETAMINOPHEN\CODEINE PHOSPHATE
     Indication: BACK DISORDER
     Dosage: FOUR TIMES DAILY
     Route: 065
  2. COCODAMOL [Suspect]
     Active Substance: ACETAMINOPHEN\CODEINE PHOSPHATE
     Indication: PELVIC PAIN
  3. METRONIDAZOLE. [Concomitant]
     Active Substance: METRONIDAZOLE
     Indication: PYELONEPHRITIS
     Route: 065
  4. ACETAMINOPHEN 650MG ER 544 [Suspect]
     Active Substance: ACETAMINOPHEN
     Indication: PELVIC PAIN
  5. CEFRADINE [Concomitant]
     Active Substance: CEPHRADINE
     Indication: PYELONEPHRITIS
     Route: 065
  6. ENOXAPARIN [Concomitant]
     Active Substance: ENOXAPARIN
     Indication: PRODUCT USED FOR UNKNOWN INDICATION
     Route: 065
  7. ACETAMINOPHEN 650MG ER 544 [Suspect]
     Active Substance: ACETAMINOPHEN
     Indication: BACK DISORDER
     Dosage: FOUR TIMES DAILY
     Route: 065
  8. FLUOXETINE [Concomitant]
     Active Substance: FLUOXETINE\FLUOXETINE HYDROCHLORIDE
     Indication: PRODUCT USED FOR UNKNOWN INDICATION
     Route: 065

REACTIONS (12)
  - Malaise [Unknown]
  - Fear [Unknown]
  - Asthenia [Unknown]
  - Hepatotoxicity [Recovered/Resolved with Sequelae]
  - Depressed level of consciousness [Unknown]
  - Accidental overdose [Recovered/Resolved]
  - Hepatic failure [Recovered/Resolved]
  - Asthenopia [Unknown]
  - Overdose [Unknown]
  - Feeling guilty [Unknown]
  - Exposure during pregnancy [Recovered/Resolved]
  - Premature labour [Unknown]
